FAERS Safety Report 7577318-7 (Version None)
Quarter: 2011Q2

REPORT INFORMATION
  Report Type: 
  Country: None (occurrence: None)
  Receive Date: 20110628
  Receipt Date: 20110601
  Transmission Date: 20111010
  Serious: Yes (Other)
  Sender: FDA-Public Use
  Company Number: US-BAYER-2011-005005

PATIENT
  Age: 37 Year
  Sex: Female
  Weight: 62.132 kg

DRUGS (3)
  1. VITAMIN D [Concomitant]
  2. DROSPIRENONE AND ETHINYL ESTRADIOL [Suspect]
     Indication: CONTRACEPTION
     Dosage: 1 DF, QD
     Route: 048
     Dates: start: 20081201, end: 20090801
  3. MULTI-VITAMINS [Concomitant]
     Dosage: UNK UNK, QD

REACTIONS (5)
  - EMOTIONAL DISTRESS [None]
  - PAIN [None]
  - INJURY [None]
  - GALLBLADDER DISORDER [None]
  - CHOLECYSTITIS CHRONIC [None]
